FAERS Safety Report 8144127-X (Version None)
Quarter: 2012Q1

REPORT INFORMATION
  Report Type: 
  Country: None (occurrence: None)
  Receive Date: 20120217
  Receipt Date: 20120210
  Transmission Date: 20120608
  Serious: Yes (Hospitalization, Other)
  Sender: FDA-Public Use
  Company Number: US-SANOFI-AVENTIS-2012SA009270

PATIENT
  Age: 75 Year
  Sex: Female

DRUGS (11)
  1. DIGOXIN [Concomitant]
  2. CRESTOR [Concomitant]
  3. PLAVIX [Suspect]
  4. ASPIRIN [Suspect]
  5. ANTIARRHYTHMICS, CLASS I AND III [Suspect]
  6. ALL OTHER THERAPEUTIC PRODUCTS [Concomitant]
  7. ALL OTHER THERAPEUTIC PRODUCTS [Concomitant]
  8. SINGULAIR [Concomitant]
  9. PRILOSEC [Suspect]
     Route: 048
  10. AMIODARONE HCL [Concomitant]
  11. XANAX [Concomitant]

REACTIONS (3)
  - RENAL DISORDER [None]
  - TRANSIENT ISCHAEMIC ATTACK [None]
  - CEREBROVASCULAR ACCIDENT [None]
